FAERS Safety Report 10253576 (Version 1)
Quarter: 2014Q2

REPORT INFORMATION
  Report Type: Spontaneous
  Country: US (occurrence: US)
  Receive Date: 20140623
  Receipt Date: 20140623
  Transmission Date: 20141212
  Serious: No
  Sender: FDA-Public Use
  Company Number: US-ZOGENIX, INC.-2011ZX000356

PATIENT
  Age: 20 Year
  Sex: Male
  Weight: 99.88 kg

DRUGS (10)
  1. SUMAVEL DOSEPRO [Suspect]
     Indication: MIGRAINE
     Dates: start: 20110627, end: 20110627
  2. SUMAVEL DOSEPRO [Suspect]
     Dates: start: 201106, end: 201106
  3. SUMAVEL DOSEPRO [Suspect]
     Dates: start: 201106, end: 201106
  4. SUMAVEL DOSEPRO [Suspect]
     Dates: start: 20110726, end: 20110726
  5. SUMAVEL DOSEPRO [Suspect]
     Dates: start: 20110802, end: 20110802
  6. LAMICTAL [Concomitant]
     Indication: AFFECTIVE DISORDER
  7. XYREM [Concomitant]
     Indication: SLEEP DISORDER
  8. VERAPAMIL [Concomitant]
     Indication: HEADACHE
     Route: 048
  9. PERCOCET /00446701/ [Concomitant]
     Indication: HEADACHE
     Route: 048
  10. XANAX [Concomitant]
     Indication: ANXIETY
     Route: 048

REACTIONS (8)
  - Injection site laceration [Recovered/Resolved]
  - Injection site erythema [Not Recovered/Not Resolved]
  - Injection site urticaria [Not Recovered/Not Resolved]
  - Injection site haemorrhage [Recovered/Resolved]
  - Drug ineffective [Unknown]
  - Incorrect dose administered by device [Recovered/Resolved]
  - Accidental exposure to product [Recovered/Resolved]
  - Device malfunction [Recovered/Resolved]
